FAERS Safety Report 5239069-3 (Version None)
Quarter: 2007Q1

REPORT INFORMATION
  Report Type: 
  Country: None (occurrence: None)
  Receive Date: 20061208
  Receipt Date: 20050502
  Transmission Date: 20070707
  Serious: Yes (Other)
  Sender: FDA-Public Use
  Company Number: 2005UW06737

PATIENT
  Age: 56 Year
  Sex: Female
  Weight: 68.038 kg

DRUGS (3)
  1. CRESTOR [Suspect]
     Indication: BLOOD CHOLESTEROL INCREASED
     Dosage: 10 MG PO
     Route: 048
     Dates: end: 20050101
  2. ZELNORM /CAN/ [Concomitant]
  3. ATENOLOL [Concomitant]

REACTIONS (1)
  - HAEMORRHOIDS [None]
